FAERS Safety Report 12506091 (Version 1)
Quarter: 2016Q2

REPORT INFORMATION
  Report Type: Report from Study
  Country: JP (occurrence: JP)
  Receive Date: 20160628
  Receipt Date: 20160628
  Transmission Date: 20160815
  Serious: Yes (Death, Life-Threatening, Other)
  Sender: FDA-Public Use
  Company Number: JP-GILEAD-2014-0107444

PATIENT
  Age: 85 Year
  Sex: Female

DRUGS (72)
  1. AMBRISENTAN [Suspect]
     Active Substance: AMBRISENTAN
     Indication: PULMONARY ARTERIAL HYPERTENSION
     Dosage: 2.5 MG, QD
     Route: 048
     Dates: start: 20110928, end: 20111228
  2. AMBRISENTAN [Suspect]
     Active Substance: AMBRISENTAN
     Dosage: 7.5 MG, QD
     Route: 048
     Dates: start: 20120112, end: 20120118
  3. PENTCILLIN [Suspect]
     Active Substance: PIPERACILLIN SODIUM
     Indication: PRODUCT USED FOR UNKNOWN INDICATION
  4. TAKEPRON [Concomitant]
     Active Substance: LANSOPRAZOLE
     Dosage: 30 MG, 1D
     Route: 048
     Dates: start: 20120214, end: 20120317
  5. URSO [Concomitant]
     Active Substance: URSODIOL
     Route: 048
     Dates: end: 20120108
  6. FUROSEMIDE. [Concomitant]
     Active Substance: FUROSEMIDE
     Dosage: UNK
     Route: 048
     Dates: start: 20120207, end: 20120212
  7. FUROSEMIDE. [Concomitant]
     Active Substance: FUROSEMIDE
     Dosage: 2 DF, 1D
     Route: 042
     Dates: start: 20120308, end: 20120331
  8. RISPERDAL [Concomitant]
     Active Substance: RISPERIDONE
     Indication: RESTLESSNESS
     Route: 048
     Dates: start: 20120207, end: 20120212
  9. SOLITA-T1 [Concomitant]
     Dosage: UNK
     Route: 042
     Dates: start: 20111230, end: 20121230
  10. MILRILA [Concomitant]
     Active Substance: MILRINONE
     Dosage: UNK
     Route: 042
     Dates: start: 20120104, end: 20120106
  11. SODIUM CHLORIDE. [Concomitant]
     Active Substance: SODIUM CHLORIDE
     Dates: start: 20120108, end: 20120206
  12. ROHYPNOL [Concomitant]
     Active Substance: FLUNITRAZEPAM
     Indication: INSOMNIA
     Dosage: UNK
     Route: 042
     Dates: start: 20120112, end: 20120330
  13. FESIN                              /00023550/ [Concomitant]
     Active Substance: IRON SUCROSE
     Indication: ANAEMIA
     Route: 042
     Dates: start: 20120215, end: 20120305
  14. PENTCILLIN [Suspect]
     Active Substance: PIPERACILLIN SODIUM
     Indication: URINARY TRACT INFECTION
     Route: 042
     Dates: start: 20111229, end: 20120103
  15. PENTCILLIN [Suspect]
     Active Substance: PIPERACILLIN SODIUM
     Indication: INFECTION
     Dosage: UNK
     Route: 042
     Dates: start: 20120203, end: 20120212
  16. DEPAS [Concomitant]
     Active Substance: ETIZOLAM
     Dosage: 1.5 MG, 1D
     Route: 048
     Dates: end: 20120108
  17. BAYASPIRIN [Concomitant]
     Active Substance: ASPIRIN
     Dosage: 100 MG, 1D
     Route: 048
     Dates: end: 20120108
  18. FUROSEMIDE. [Concomitant]
     Active Substance: FUROSEMIDE
     Dosage: 2 DF, 1D
     Route: 042
     Dates: start: 20111221, end: 20120207
  19. SEISHOKU [Concomitant]
     Active Substance: SODIUM CHLORIDE
     Dosage: UNK
     Route: 042
     Dates: start: 20120109, end: 20120109
  20. BFLUID [Concomitant]
     Active Substance: AMINO ACIDS\DEXTROSE\ELECTROLYTES NOS\VITAMINS
     Dosage: UNK
     Route: 042
     Dates: start: 20120207, end: 20120207
  21. LAXOBERON [Concomitant]
     Active Substance: SODIUM PICOSULFATE
     Indication: CONSTIPATION
     Dosage: UNK
     Route: 048
     Dates: start: 20120119, end: 20120212
  22. MS ONSHIPPU [Concomitant]
     Route: 061
  23. CRAVIT [Concomitant]
     Active Substance: LEVOFLOXACIN
     Indication: EYE DISCHARGE
     Route: 031
     Dates: start: 20111222, end: 20120330
  24. OLIVE OIL [Concomitant]
     Active Substance: OLIVE OIL
     Dosage: UNK
     Route: 061
     Dates: start: 20120330, end: 20120330
  25. MILLISROL [Concomitant]
     Dosage: UNK
     Dates: start: 20111221, end: 20121221
  26. AMBRISENTAN [Suspect]
     Active Substance: AMBRISENTAN
     Dosage: 10 MG, QD
     Route: 048
     Dates: start: 20120119, end: 20120317
  27. MYSLEE [Concomitant]
     Active Substance: ZOLPIDEM TARTRATE
     Dosage: 10 MG, 1D
     Route: 048
     Dates: start: 20120214, end: 20120317
  28. RISPERDAL [Concomitant]
     Active Substance: RISPERIDONE
     Dosage: UNK
     Route: 048
     Dates: start: 20120214, end: 20120317
  29. ITOROL [Concomitant]
     Active Substance: ISOSORBIDE MONONITRATE
     Dosage: UNK
     Route: 048
     Dates: start: 20120207, end: 20120212
  30. ITOROL [Concomitant]
     Active Substance: ISOSORBIDE MONONITRATE
     Dosage: UNK
     Route: 048
     Dates: start: 20120225, end: 20120307
  31. FRAGMIN [Concomitant]
     Active Substance: DALTEPARIN SODIUM
     Indication: THROMBOSIS PROPHYLAXIS
     Dosage: UNK
     Route: 042
     Dates: start: 20111221, end: 20120206
  32. SEISHOKU [Concomitant]
     Active Substance: SODIUM CHLORIDE
     Dosage: UNK
     Route: 042
     Dates: start: 20120210, end: 20120212
  33. SERENACE [Concomitant]
     Active Substance: HALOPERIDOL
     Dosage: UNK
     Dates: start: 20120206, end: 20120212
  34. GASTER [Concomitant]
     Active Substance: FAMOTIDINE
     Dates: start: 20120319, end: 20120331
  35. ALBUMIN [Concomitant]
     Active Substance: ALBUMIN HUMAN
     Dosage: UNK
     Route: 042
     Dates: start: 20120108, end: 20120110
  36. BFLUID [Concomitant]
     Active Substance: AMINO ACIDS\DEXTROSE\ELECTROLYTES NOS\VITAMINS
     Indication: FLUID REPLACEMENT
     Dosage: UNK
     Route: 042
     Dates: start: 20120108, end: 20120331
  37. WINTERMIN                          /00011902/ [Concomitant]
     Indication: RESTLESSNESS
     Route: 048
     Dates: start: 20120127, end: 20120204
  38. SELTOUCH [Concomitant]
     Active Substance: FELBINAC
     Dosage: UNK
  39. BERASUS [Concomitant]
     Active Substance: BERAPROST SODIUM
     Dosage: UNK
     Route: 048
     Dates: start: 20120225, end: 20120317
  40. METHYCOBAL [Concomitant]
     Active Substance: METHYLCOBALAMIN
     Dosage: 1500 ?G, 1D
     Route: 048
     Dates: end: 20120108
  41. ONEALFA [Concomitant]
     Active Substance: ALFACALCIDOL
     Dosage: 1.0 ?G, 1D
     Route: 048
     Dates: end: 20120108
  42. HANP [Concomitant]
     Active Substance: CARPERITIDE
     Dosage: UNK
     Route: 042
     Dates: start: 20120107, end: 20120113
  43. HIRUDOID                           /00723701/ [Concomitant]
     Active Substance: PENTOSAN POLYSULFATE SODIUM
     Route: 061
     Dates: start: 20120116
  44. AMBRISENTAN [Suspect]
     Active Substance: AMBRISENTAN
     Dosage: 5 MG, QD
     Route: 048
     Dates: start: 20111229, end: 20120111
  45. BERASUS [Concomitant]
     Active Substance: BERAPROST SODIUM
     Indication: PULMONARY ARTERIAL HYPERTENSION
     Dosage: UNK
     Route: 048
     Dates: start: 20111227, end: 20120212
  46. MYSLEE [Concomitant]
     Active Substance: ZOLPIDEM TARTRATE
     Indication: INSOMNIA
     Dosage: 10 MG, 1D
     Route: 048
     Dates: end: 20120212
  47. KAKODIN D [Concomitant]
     Route: 042
     Dates: start: 20120108, end: 20120111
  48. KAKODIN D [Concomitant]
     Dosage: UNK
     Dates: start: 20120309, end: 20120331
  49. BFLUID [Concomitant]
     Active Substance: AMINO ACIDS\DEXTROSE\ELECTROLYTES NOS\VITAMINS
     Dosage: UNK
     Route: 042
     Dates: start: 20120213, end: 20120222
  50. SERENACE [Concomitant]
     Active Substance: HALOPERIDOL
     Indication: RESTLESSNESS
     Dosage: UNK
     Dates: start: 20120204, end: 20120204
  51. TANATRIL [Concomitant]
     Active Substance: IMIDAPRIL
     Dosage: UNK
     Route: 048
     Dates: start: 20111224, end: 20120108
  52. MYOCOR [Concomitant]
     Active Substance: NITROGLYCERIN
     Dosage: UNK
     Dates: start: 20120308, end: 20120331
  53. REVATIO [Concomitant]
     Active Substance: SILDENAFIL CITRATE
     Indication: PULMONARY ARTERIAL HYPERTENSION
     Dosage: UNK
     Route: 048
     Dates: start: 20120119, end: 20120124
  54. TAKEPRON [Concomitant]
     Active Substance: LANSOPRAZOLE
     Dosage: 30 MG, 1D
     Route: 048
     Dates: end: 20120212
  55. PURSENNIDE                         /00571901/ [Concomitant]
     Route: 048
     Dates: end: 20120108
  56. FUROSEMIDE. [Concomitant]
     Active Substance: FUROSEMIDE
     Dosage: 20 MG, 1D
     Route: 048
     Dates: end: 20111221
  57. MILRILA [Concomitant]
     Active Substance: MILRINONE
     Dosage: UNK
     Route: 042
     Dates: start: 20120328, end: 20120329
  58. HYPEN                              /00613801/ [Concomitant]
     Active Substance: ETODOLAC
     Route: 048
     Dates: start: 20120113, end: 20120212
  59. VOLTAREN [Concomitant]
     Active Substance: DICLOFENAC SODIUM
     Route: 061
  60. MS ONSHIPPU [Concomitant]
     Dosage: UNK
  61. AZUNOL #1 [Concomitant]
     Route: 061
     Dates: start: 20111222, end: 20120330
  62. ALDACTONE A [Concomitant]
     Active Substance: SPIRONOLACTONE
  63. PRAZAXA [Suspect]
     Active Substance: DABIGATRAN ETEXILATE MESYLATE
     Indication: RESTLESSNESS
     Route: 048
     Dates: start: 20120207, end: 20120212
  64. GASMOTIN [Concomitant]
     Active Substance: MOSAPRIDE CITRATE
     Dosage: 15 MG, 1D
     Route: 048
     Dates: end: 20120108
  65. CARNACULIN                         /00088101/ [Concomitant]
     Dosage: 3 DF, QD
     Route: 048
     Dates: end: 20120108
  66. EVISTA [Concomitant]
     Active Substance: RALOXIFENE HYDROCHLORIDE
     Dosage: 60 MG, 1D
     Route: 048
     Dates: end: 20120108
  67. FUROSEMIDE. [Concomitant]
     Active Substance: FUROSEMIDE
     Dosage: UNK
     Route: 048
     Dates: start: 20120214, end: 20120307
  68. SOLITA-T1 [Concomitant]
     Dosage: UNK
     Route: 042
     Dates: start: 20120228, end: 20120331
  69. SEISHOKU [Concomitant]
     Active Substance: SODIUM CHLORIDE
     Indication: FLUID REPLACEMENT
     Dosage: UNK
     Route: 042
     Dates: start: 20120107, end: 20120112
  70. SELTOUCH [Concomitant]
     Active Substance: FELBINAC
     Route: 061
  71. LAMISIL [Concomitant]
     Active Substance: TERBINAFINE HYDROCHLORIDE
     Route: 061
     Dates: start: 20111230, end: 20120330
  72. MILLISROL [Concomitant]
     Dosage: UNK

REACTIONS (6)
  - Melaena [Recovered/Resolved]
  - Cardiac failure [Fatal]
  - Blood creatinine increased [Not Recovered/Not Resolved]
  - Infection [Not Recovered/Not Resolved]
  - Urinary tract infection [Not Recovered/Not Resolved]
  - Off label use [Not Recovered/Not Resolved]

NARRATIVE: CASE EVENT DATE: 20110928
